FAERS Safety Report 16656929 (Version 2)
Quarter: 2019Q3

REPORT INFORMATION
  Report Type: Spontaneous
  Country: AU (occurrence: AU)
  Receive Date: 20190801
  Receipt Date: 20190819
  Transmission Date: 20191004
  Serious: Yes (Other)
  Sender: FDA-Public Use
  Company Number: AU-UCBSA-2019032174

PATIENT
  Age: 19 Year
  Sex: Female

DRUGS (8)
  1. COLCHICINE. [Suspect]
     Active Substance: COLCHICINE
     Indication: AUTOINFLAMMATORY DISEASE
     Dosage: UNK
     Dates: start: 20180328, end: 20180413
  2. ANAKINRA [Suspect]
     Active Substance: ANAKINRA
     Indication: AUTOINFLAMMATORY DISEASE
     Dosage: UNK
     Dates: start: 20181210, end: 20190107
  3. SULFASALAZINE. [Concomitant]
     Active Substance: SULFASALAZINE
     Indication: PRODUCT USED FOR UNKNOWN INDICATION
     Dosage: UNK
  4. STELARA [Suspect]
     Active Substance: USTEKINUMAB
     Indication: PRODUCT USED FOR UNKNOWN INDICATION
     Dosage: 45 MILLIGRAM, UNKNOWN FREQUENCY
     Route: 058
     Dates: start: 20170627, end: 20171005
  5. MICROGYNON [ETHINYLESTRADIOL;LEVONORGESTREL] [Concomitant]
     Active Substance: ETHINYL ESTRADIOL\LEVONORGESTREL
     Indication: PRODUCT USED FOR UNKNOWN INDICATION
     Dosage: UNK
  6. COSENTYX [Suspect]
     Active Substance: SECUKINUMAB
     Indication: PSORIATIC ARTHROPATHY
     Dosage: 300 MILLIGRAM
     Route: 058
     Dates: start: 20180228, end: 20180523
  7. CIMZIA [Suspect]
     Active Substance: CERTOLIZUMAB PEGOL
     Indication: PRODUCT USED FOR UNKNOWN INDICATION
     Dosage: 200 MILLIGRAM, UNKNOWN FREQUENCY
     Route: 058
     Dates: start: 20171019, end: 20180215
  8. METHOTREXATE. [Suspect]
     Active Substance: METHOTREXATE
     Indication: PRODUCT USED FOR UNKNOWN INDICATION
     Dosage: 20 MILLIGRAM, WEEKLY (QW)
     Route: 058
     Dates: start: 20170221, end: 20170627

REACTIONS (11)
  - Autoinflammatory disease [Unknown]
  - Barotrauma [Unknown]
  - Gamma-glutamyltransferase increased [Unknown]
  - Nausea [Unknown]
  - Vitamin D decreased [Unknown]
  - Sacroiliitis [Unknown]
  - Diarrhoea [Unknown]
  - Hyperparathyroidism secondary [Unknown]
  - Treatment failure [Unknown]
  - Axial spondyloarthritis [Unknown]
  - Vertigo [Unknown]

NARRATIVE: CASE EVENT DATE: 20180207
